FAERS Safety Report 8176417-9 (Version None)
Quarter: 2012Q1

REPORT INFORMATION
  Report Type: 
  Country: None (occurrence: None)
  Receive Date: 20120228
  Receipt Date: 20120216
  Transmission Date: 20120608
  Serious: Yes (Hospitalization, Other)
  Sender: FDA-Public Use
  Company Number: 2010SP025473

PATIENT
  Age: 55 Year
  Sex: Male

DRUGS (6)
  1. VICTRELIS [Suspect]
     Indication: HEPATITIS C
     Dates: start: 20120112, end: 20120203
  2. PROCRIT [Suspect]
     Indication: PRODUCT USED FOR UNKNOWN INDICATION
  3. PEG-INTRON [Suspect]
     Indication: HEPATITIS C
     Dates: start: 20111214, end: 20120203
  4. PEG-INTRON [Suspect]
     Indication: HEPATITIS C
     Dates: start: 20091230, end: 20100426
  5. REBETOL [Suspect]
     Indication: HEPATITIS C
     Dates: start: 20091230, end: 20100426
  6. REBETOL [Suspect]
     Indication: HEPATITIS C
     Dates: start: 20111215, end: 20120203

REACTIONS (8)
  - IMPAIRED HEALING [None]
  - PNEUMONIA [None]
  - BLOOD COUNT ABNORMAL [None]
  - ALOPECIA [None]
  - HEADACHE [None]
  - VOMITING [None]
  - RED BLOOD CELL COUNT DECREASED [None]
  - HAEMOPTYSIS [None]
